FAERS Safety Report 6138873-7 (Version None)
Quarter: 2009Q1

REPORT INFORMATION
  Report Type: 
  Country: None (occurrence: None)
  Receive Date: 20090331
  Receipt Date: 20090324
  Transmission Date: 20090719
  Serious: Yes (Hospitalization)
  Sender: FDA-Public Use
  Company Number: FR-B.I. PHARMACEUTICALS,INC./RIDGEFIELD-2009-FF-00223FF

PATIENT
  Sex: Female

DRUGS (19)
  1. ATROVENT [Suspect]
     Route: 055
     Dates: start: 20090110, end: 20090116
  2. ROCEPHIN [Concomitant]
     Dosage: 1.5G
     Dates: start: 20090110, end: 20090116
  3. NEXIUM [Concomitant]
     Dosage: 20MG
     Route: 048
     Dates: start: 20090110, end: 20090119
  4. LASIX [Concomitant]
     Dosage: 40MG
     Route: 048
     Dates: start: 20090110, end: 20090119
  5. ALDACTONE [Concomitant]
     Route: 048
  6. ALDACTONE [Concomitant]
     Dosage: 50MG
     Dates: start: 20090112, end: 20090116
  7. RULID [Concomitant]
     Dates: end: 20090119
  8. PERINDOPRIL ERBUMINE [Concomitant]
  9. DEROXAT [Concomitant]
     Route: 048
  10. KREDEX [Concomitant]
  11. ASCORBIC ACID [Concomitant]
  12. ZOLPIDEM [Concomitant]
  13. CALTRATE + VITAMIN D [Concomitant]
  14. ACTONEL [Concomitant]
  15. TRAMADOL HCL [Concomitant]
  16. CORTANCYL [Concomitant]
  17. LOVENOX [Concomitant]
     Dates: start: 20090110, end: 20090119
  18. LOVENOX [Concomitant]
     Dates: start: 20090122
  19. VALIUM [Concomitant]
     Dates: start: 20090110, end: 20090116

REACTIONS (1)
  - AGRANULOCYTOSIS [None]
